FAERS Safety Report 5341268-7 (Version None)
Quarter: 2007Q2

REPORT INFORMATION
  Report Type: 
  Country: None (occurrence: None)
  Receive Date: 20070530
  Receipt Date: 20070518
  Transmission Date: 20071010
  Serious: Yes (Other)
  Sender: FDA-Public Use
  Company Number: TPA2007A01059

PATIENT
  Age: 51 Year
  Sex: Male

DRUGS (2)
  1. ROZEREM [Suspect]
     Dosage: 8 MG, UNKNOWN, PER ORAL
     Route: 048
  2. VITAMIN (VITAMINS) (UNKNOWN) [Concomitant]

REACTIONS (4)
  - CATATONIA [None]
  - FEAR [None]
  - MOVEMENT DISORDER [None]
  - SPEECH DISORDER [None]
